FAERS Safety Report 9705644 (Version 1)
Quarter: 2013Q4

REPORT INFORMATION
  Report Type: Spontaneous
  Country: US (occurrence: US)
  Receive Date: 20131122
  Receipt Date: 20131122
  Transmission Date: 20140711
  Serious: Yes (Other)
  Sender: FDA-Public Use
  Company Number: US-GILEAD-2008-0017459

PATIENT
  Age: 78 Year
  Sex: Female

DRUGS (15)
  1. LETAIRIS [Suspect]
     Indication: PULMONARY ARTERIAL HYPERTENSION
     Route: 048
     Dates: start: 20080624, end: 20080628
  2. XANAX [Concomitant]
  3. PAXIL [Concomitant]
  4. ALLEGRA [Concomitant]
  5. SYNTHROID [Concomitant]
  6. ACTONEL [Concomitant]
  7. CELEBREX [Concomitant]
  8. PREVACID [Concomitant]
  9. CARTIA XT [Concomitant]
  10. LOMOTIL [Concomitant]
  11. COMBIVENT [Concomitant]
  12. SYMBICORT [Concomitant]
  13. LASIX [Concomitant]
  14. POTASSIUM CHLORIDE [Concomitant]
  15. PREDNISONE [Concomitant]

REACTIONS (1)
  - Dyspnoea [Recovered/Resolved]
